FAERS Safety Report 8555872-6 (Version None)
Quarter: 2012Q3

REPORT INFORMATION
  Report Type: 
  Country: None (occurrence: None)
  Receive Date: 20120801
  Receipt Date: 20120723
  Transmission Date: 20120928
  Serious: No
  Sender: FDA-Public Use
  Company Number: US-BIOGENIDEC-2012BI027708

PATIENT
  Sex: Female

DRUGS (4)
  1. AVONEX [Concomitant]
     Indication: MULTIPLE SCLEROSIS
     Route: 030
     Dates: start: 20021204
  2. TYSABRI [Suspect]
     Route: 042
     Dates: start: 20100407, end: 20111003
  3. TYSABRI [Suspect]
     Route: 042
     Dates: start: 20111208, end: 20120105
  4. TYSABRI [Suspect]
     Indication: MULTIPLE SCLEROSIS
     Route: 042
     Dates: start: 20090105, end: 20090820

REACTIONS (2)
  - COUGH [None]
  - DYSPHONIA [None]
